FAERS Safety Report 6122600-3 (Version None)
Quarter: 2009Q1

REPORT INFORMATION
  Report Type: 
  Country: None (occurrence: None)
  Receive Date: 20090316
  Receipt Date: 20090226
  Transmission Date: 20090719
  Serious: Yes (Hospitalization)
  Sender: FDA-Public Use
  Company Number: PPC200900026

PATIENT

DRUGS (1)
  1. ACYCLOVIR SODIUM [Suspect]
     Indication: GENITAL HERPES
     Dosage: 100 MG, 3 IN 1 D, INTRAVENOUS
     Route: 042

REACTIONS (8)
  - DRUG EXPOSURE DURING PREGNANCY [None]
  - FEVER NEONATAL [None]
  - GENERAL PHYSICAL HEALTH DETERIORATION [None]
  - LARGE INTESTINE PERFORATION [None]
  - NECROTISING ENTEROCOLITIS NEONATAL [None]
  - NEONATAL DISORDER [None]
  - TRANSAMINASES INCREASED [None]
  - VOMITING NEONATAL [None]
